FAERS Safety Report 7689666-0 (Version None)
Quarter: 2011Q3

REPORT INFORMATION
  Report Type: 
  Country: None (occurrence: None)
  Receive Date: 20110817
  Receipt Date: 20110718
  Transmission Date: 20111222
  Serious: No
  Sender: FDA-Public Use
  Company Number: US-BAYER-2011-064260

PATIENT
  Sex: Female

DRUGS (1)
  1. FINACEA [Suspect]
     Indication: ROSACEA
     Dosage: UNK

REACTIONS (4)
  - SKIN IRRITATION [None]
  - ERYTHEMA [None]
  - DERMATITIS [None]
  - RASH PUSTULAR [None]
